FAERS Safety Report 7946010-9 (Version None)
Quarter: 2011Q4

REPORT INFORMATION
  Report Type: 
  Country: None (occurrence: None)
  Receive Date: 20111129
  Receipt Date: 20111122
  Transmission Date: 20120403
  Serious: Yes (Hospitalization)
  Sender: FDA-Public Use
  Company Number: US-GLAXOSMITHKLINE-A0784461A

PATIENT
  Age: 50 Year
  Sex: Male
  Weight: 115 kg

DRUGS (9)
  1. JANUVIA [Concomitant]
  2. TOPROL-XL [Concomitant]
  3. CRESTOR [Concomitant]
  4. AVANDIA [Suspect]
     Indication: DIABETES MELLITUS
     Dosage: 2MG TWICE PER DAY
     Route: 048
  5. METFORMIN HCL [Concomitant]
  6. DIABETA [Concomitant]
  7. AVANDAMET [Suspect]
     Indication: DIABETES MELLITUS
     Dosage: 1TAB TWICE PER DAY
     Route: 048
     Dates: start: 20070312, end: 20070101
  8. PRANDIN [Concomitant]
  9. PRANDIN [Concomitant]

REACTIONS (3)
  - MYOCARDIAL INFARCTION [None]
  - EMOTIONAL DISTRESS [None]
  - CORONARY ARTERY DISEASE [None]
